FAERS Safety Report 11199981 (Version 1)
Quarter: 2015Q2

REPORT INFORMATION
  Report Type: Spontaneous
  Country: NO (occurrence: NO)
  Receive Date: 20150618
  Receipt Date: 20150618
  Transmission Date: 20150821
  Serious: Yes (Death, Other)
  Sender: FDA-Public Use
  Company Number: NO-TAKEDA-2015TUS007871

PATIENT
  Sex: Male

DRUGS (1)
  1. ENTYVIO [Suspect]
     Active Substance: VEDOLIZUMAB
     Indication: GRAFT VERSUS HOST DISEASE
     Dosage: UNK
     Route: 042
     Dates: start: 2015

REACTIONS (2)
  - Graft versus host disease in skin [Fatal]
  - Opportunistic infection [Fatal]

NARRATIVE: CASE EVENT DATE: 2015
